FAERS Safety Report 11751977 (Version 1)
Quarter: 2015Q4

REPORT INFORMATION
  Report Type: Spontaneous
  Country: US (occurrence: US)
  Receive Date: 20151118
  Receipt Date: 20151118
  Transmission Date: 20160304
  Serious: Yes (Hospitalization, Other)
  Sender: FDA-Public Use
  Company Number: US-GLAXOSMITHKLINE-US2015164494

PATIENT
  Sex: Male

DRUGS (1)
  1. BENLYSTA [Suspect]
     Active Substance: BELIMUMAB
     Indication: PRODUCT USED FOR UNKNOWN INDICATION
     Dosage: 10 MG/KG, UNK
     Dates: start: 20151116

REACTIONS (5)
  - Pruritus [Unknown]
  - Throat tightness [Unknown]
  - Swollen tongue [Unknown]
  - Pulmonary congestion [Unknown]
  - Cough [Unknown]

NARRATIVE: CASE EVENT DATE: 20151116
